FAERS Safety Report 13188124 (Version 1)
Quarter: 2017Q1

REPORT INFORMATION
  Report Type: Report from Study
  Country: US (occurrence: DE)
  Receive Date: 20170206
  Receipt Date: 20170206
  Transmission Date: 20170428
  Serious: Yes (Hospitalization, Other)
  Sender: FDA-Public Use
  Company Number: US-SUNOVION-2017SUN000419

PATIENT
  Sex: Male
  Weight: 58 kg

DRUGS (10)
  1. BUDESONIDE. [Concomitant]
     Active Substance: BUDESONIDE
     Dosage: 400 ?G, UNK
     Route: 055
     Dates: start: 20160223
  2. CLOPIDOGREL HENNIG [Concomitant]
  3. ENALAPRIL [Concomitant]
     Active Substance: ENALAPRIL
  4. PREDNISOLONE. [Concomitant]
     Active Substance: PREDNISOLONE
  5. INDACATEROL AND GLYCOPYRROLATE [Suspect]
     Active Substance: GLYCOPYRROLATE\INDACATEROL MALEATE
     Indication: CHRONIC OBSTRUCTIVE PULMONARY DISEASE
     Dosage: 1 DF QD (110/50MCG)
     Route: 055
     Dates: start: 20141014, end: 201602
  6. METOPROLOL. [Concomitant]
     Active Substance: METOPROLOL
  7. AMLODIPINE [Concomitant]
     Active Substance: AMLODIPINE BESYLATE
  8. CLOPIDOGREL [Concomitant]
     Active Substance: CLOPIDOGREL BISULFATE
     Dosage: UNK
     Dates: start: 20160421
  9. PANTOPRAZOLE [Concomitant]
     Active Substance: PANTOPRAZOLE SODIUM
  10. ACETYLSALICYLIC ACID [Concomitant]
     Active Substance: ASPIRIN

REACTIONS (7)
  - Coronary artery disease [Not Recovered/Not Resolved]
  - Dyspnoea exertional [Recovering/Resolving]
  - Chest pain [Recovering/Resolving]
  - Angina pectoris [Recovering/Resolving]
  - Coronary artery stenosis [Recovering/Resolving]
  - Chronic obstructive pulmonary disease [Recovering/Resolving]
  - Chest discomfort [Recovering/Resolving]

NARRATIVE: CASE EVENT DATE: 20160206
